FAERS Safety Report 7568091-7 (Version None)
Quarter: 2011Q2

REPORT INFORMATION
  Report Type: 
  Country: None (occurrence: None)
  Receive Date: 20110623
  Receipt Date: 20110614
  Transmission Date: 20111010
  Serious: Yes (Hospitalization)
  Sender: FDA-Public Use
  Company Number: FR-ASTRAZENECA-2011SE36843

PATIENT
  Age: 27612 Day
  Sex: Male

DRUGS (5)
  1. JANUMET [Suspect]
     Dosage: 50 MG/1000 MG DAILY
     Route: 048
  2. ASPIRIN [Suspect]
     Route: 048
  3. OMEPRAZOLE [Suspect]
     Route: 048
  4. HYDROCORTISONE [Suspect]
     Route: 048
  5. ALLOPURINOL [Suspect]
     Route: 048

REACTIONS (1)
  - LUNG INFECTION [None]
